FAERS Safety Report 21474303 (Version 3)
Quarter: 2023Q2

REPORT INFORMATION
  Report Type: Report from Study
  Country: US (occurrence: US)
  Receive Date: 20221018
  Receipt Date: 20230407
  Transmission Date: 20230722
  Serious: No
  Sender: FDA-Public Use
  Company Number: US-ABBVIE-4157511

PATIENT
  Age: 76 Year
  Sex: Female

DRUGS (3)
  1. SKYRIZI [Suspect]
     Active Substance: RISANKIZUMAB-RZAA
     Indication: Psoriasis
     Dosage: STRENGTH: 150 MG.
     Route: 058
     Dates: start: 20220922
  2. SKYRIZI [Suspect]
     Active Substance: RISANKIZUMAB-RZAA
     Indication: Psoriatic arthropathy
     Dosage: STRENGTH: 150 MG.?WEEK 0
     Route: 058
  3. SKYRIZI [Suspect]
     Active Substance: RISANKIZUMAB-RZAA
     Dosage: STRENGTH: 150 MG.?WEEK 4
     Route: 058

REACTIONS (12)
  - Urine odour abnormal [Not Recovered/Not Resolved]
  - Dysuria [Unknown]
  - Pruritus [Unknown]
  - Joint warmth [Unknown]
  - Asthenia [Unknown]
  - Arthralgia [Unknown]
  - Stenosis [Unknown]
  - Psoriasis [Unknown]
  - Joint swelling [Unknown]
  - Erythema [Unknown]
  - Burning sensation [Unknown]
  - Loss of personal independence in daily activities [Unknown]

NARRATIVE: CASE EVENT DATE: 20221101
